FAERS Safety Report 8542412-0 (Version None)
Quarter: 2012Q3

REPORT INFORMATION
  Report Type: 
  Country: None (occurrence: None)
  Receive Date: 20120726
  Receipt Date: 20120713
  Transmission Date: 20120928
  Serious: Yes (Hospitalization, Other)
  Sender: FDA-Public Use
  Company Number: FR-JNJFOC-20120700396

PATIENT
  Sex: Male
  Weight: 59 kg

DRUGS (6)
  1. RUBOZINC [Concomitant]
     Indication: ACNE
     Dates: start: 20110623
  2. DARUNAVIR ETHANOLATE [Suspect]
     Indication: HIV INFECTION
     Route: 048
     Dates: start: 20110624
  3. PAROXETINE HYDROCHLORIDE [Concomitant]
     Indication: DEPRESSION
     Dates: start: 20100101
  4. UNKNOWN MEDICATION [Concomitant]
     Dates: start: 20110623
  5. RITONAVIR [Suspect]
     Indication: HIV INFECTION
     Route: 048
     Dates: start: 20110624
  6. TRUVADA [Suspect]
     Indication: HIV INFECTION
     Route: 048
     Dates: start: 20110624

REACTIONS (1)
  - ACUTE CORONARY SYNDROME [None]
